FAERS Safety Report 9858469 (Version 1)
Quarter: 2014Q1

REPORT INFORMATION
  Report Type: Spontaneous
  Country: US (occurrence: None)
  Receive Date: 20140129
  Receipt Date: 20140129
  Transmission Date: 20141002
  Serious: Yes (Hospitalization, Other)
  Sender: FDA-Public Use
  Company Number: None

PATIENT
  Age: 64 Year
  Sex: Female
  Weight: 120.2 kg

DRUGS (1)
  1. VICTOZA [Suspect]
     Indication: DIABETES MELLITUS MANAGEMENT
     Dosage: GIVEN INTO/UNDER THE SKIN
     Route: 058
     Dates: start: 20131010, end: 20140102

REACTIONS (7)
  - Nausea [None]
  - Weight decreased [None]
  - Headache [None]
  - Pyrexia [None]
  - Rash pruritic [None]
  - Rash [None]
  - Heart rate increased [None]
